FAERS Safety Report 11993057 (Version 1)
Quarter: 2016Q1

REPORT INFORMATION
  Report Type: Report from Study
  Country: BR (occurrence: BR)
  Receive Date: 20160203
  Receipt Date: 20160203
  Transmission Date: 20160526
  Serious: Yes (Hospitalization, Other)
  Sender: FDA-Public Use
  Company Number: BR-ROCHE-1591387

PATIENT
  Age: 55 Year
  Sex: Female
  Weight: 85 kg

DRUGS (10)
  1. ACTEMRA [Suspect]
     Active Substance: TOCILIZUMAB
     Indication: RHEUMATOID ARTHRITIS
     Dosage: MOST RECENT DOSE RECEIVED ON : 01/MAR/2015
     Route: 042
     Dates: start: 20091222, end: 201507
  2. GLIFAGE [Concomitant]
     Active Substance: METFORMIN HYDROCHLORIDE
  3. TYLEX (BRAZIL) [Concomitant]
     Indication: PAIN
  4. OMEPRAZOLE. [Concomitant]
     Active Substance: OMEPRAZOLE
     Dosage: DAILY USE
     Route: 065
  5. PURAN [Concomitant]
     Active Substance: LEVOTHYROXINE SODIUM
  6. ARAVA [Concomitant]
     Active Substance: LEFLUNOMIDE
     Route: 065
     Dates: start: 2005
  7. NAPROXEN. [Concomitant]
     Active Substance: NAPROXEN
     Route: 065
  8. ARADOIS [Concomitant]
     Active Substance: LOSARTAN POTASSIUM
     Indication: HYPERTENSION
  9. DIPYRONE [Concomitant]
     Active Substance: DIPYRONE
     Indication: PAIN
  10. LISADOR [Concomitant]
     Active Substance: DIPYRONE\PROMETHAZINE HYDROCHLORIDE
     Indication: PAIN
     Dosage: DROPS
     Route: 065

REACTIONS (14)
  - Influenza [Not Recovered/Not Resolved]
  - Hypoacusis [Recovering/Resolving]
  - Ear congestion [Recovering/Resolving]
  - Pain [Recovered/Resolved]
  - Diabetes mellitus [Not Recovered/Not Resolved]
  - Cataract [Unknown]
  - Weight decreased [Unknown]
  - Cough [Not Recovered/Not Resolved]
  - Catarrh [Not Recovered/Not Resolved]
  - Arthropathy [Unknown]
  - Lung infection [Unknown]
  - Dysphonia [Not Recovered/Not Resolved]
  - Musculoskeletal pain [Not Recovered/Not Resolved]
  - Hypothyroidism [Not Recovered/Not Resolved]

NARRATIVE: CASE EVENT DATE: 20100530
